FAERS Safety Report 10441175 (Version 1)
Quarter: 2014Q3

REPORT INFORMATION
  Report Type: Other
  Country: TW (occurrence: TW)
  Receive Date: 20140909
  Receipt Date: 20140909
  Transmission Date: 20150326
  Serious: Yes (Hospitalization, Other)
  Sender: FDA-Public Use
  Company Number: TW-ENDO PHARMACEUTICALS INC-HYDR20140021

PATIENT
  Age: 18 Year
  Sex: Male

DRUGS (3)
  1. NACL [Suspect]
     Active Substance: SODIUM CHLORIDE
     Indication: SEPTIC SHOCK
     Dosage: UNK
     Route: 042
  2. HYDROCORTISONE TABLETS [Suspect]
     Active Substance: HYDROCORTISONE
     Indication: ADRENOCORTICAL INSUFFICIENCY ACUTE
     Dosage: UNK
     Route: 065
  3. ANTIBIOTICS [Concomitant]
     Active Substance: UNSPECIFIED INGREDIENT
     Indication: SEPTIC SHOCK
     Dosage: UNK
     Route: 065

REACTIONS (6)
  - Diabetes insipidus [None]
  - Septic shock [None]
  - Adrenocortical insufficiency acute [None]
  - Germ cell cancer [None]
  - Coma [None]
  - Hypernatraemia [Recovered/Resolved]

NARRATIVE: CASE EVENT DATE: 201409
